FAERS Safety Report 5989694-7 (Version None)
Quarter: 2008Q4

REPORT INFORMATION
  Report Type: 
  Country: None (occurrence: None)
  Receive Date: 20081210
  Receipt Date: 20081204
  Transmission Date: 20090506
  Serious: Yes (Hospitalization)
  Sender: FDA-Public Use
  Company Number: US-ROXANE LABORATORIES, INC.-2008-RO-00356RO

PATIENT
  Age: 31 Year
  Sex: Female

DRUGS (3)
  1. DEXAMETHASONE [Suspect]
     Indication: MULTIPLE SCLEROSIS
     Route: 042
  2. MORPHINE [Suspect]
     Indication: MUSCULOSKELETAL PAIN
     Route: 042
  3. RED BLOOD CELLS [Concomitant]
     Indication: HAEMOGLOBIN DECREASED

REACTIONS (6)
  - BLOOD LACTATE DEHYDROGENASE INCREASED [None]
  - BONE INFARCTION [None]
  - FAT EMBOLISM [None]
  - LEUKOCYTOSIS [None]
  - NODULE ON EXTREMITY [None]
  - VENOOCCLUSIVE DISEASE [None]
